FAERS Safety Report 14533500 (Version 1)
Quarter: 2018Q1

REPORT INFORMATION
  Report Type: Spontaneous
  Country: ES (occurrence: ES)
  Receive Date: 20180215
  Receipt Date: 20180215
  Transmission Date: 20180509
  Serious: Yes (Hospitalization)
  Sender: FDA-Public Use
  Company Number: ES-BAUSCH-BL-2018-003544

PATIENT
  Age: 80 Year
  Sex: Female

DRUGS (4)
  1. ACICLOVIR [Suspect]
     Active Substance: ACYCLOVIR
     Indication: ANTIVIRAL PROPHYLAXIS
     Route: 048
  2. TRIMETOPRIMA [Suspect]
     Active Substance: TRIMETHOPRIM
     Indication: ANTIVIRAL PROPHYLAXIS
     Dosage: SATURDAYS AND SUNDAYS
     Route: 048
  3. LENALIDOMIDA [Suspect]
     Active Substance: LENALIDOMIDE
     Indication: PLASMA CELL MYELOMA
     Route: 048
     Dates: start: 20170517, end: 20170606
  4. ALOPURINOL [Suspect]
     Active Substance: ALLOPURINOL
     Indication: HYPERURICAEMIA
     Route: 048
     Dates: start: 20170505, end: 20170606

REACTIONS (3)
  - Renal failure [Recovered/Resolved]
  - Hepatitis [Recovered/Resolved]
  - Drug reaction with eosinophilia and systemic symptoms [Recovered/Resolved]

NARRATIVE: CASE EVENT DATE: 20170530
